FAERS Safety Report 16152104 (Version 1)
Quarter: 2019Q2

REPORT INFORMATION
  Report Type: Report from Study
  Country: None (occurrence: BR)
  Receive Date: 20190403
  Receipt Date: 20190403
  Transmission Date: 20190711
  Serious: Yes (Hospitalization, Other)
  Sender: FDA-Public Use
  Company Number: BR-ABBVIE-19K-020-2727099-00

PATIENT
  Sex: Female
  Weight: 51 kg

DRUGS (3)
  1. ALFAEPOETINA HUMANA RECOMBINANTE [Concomitant]
     Indication: RENAL DISORDER
  2. HUMIRA [Suspect]
     Active Substance: ADALIMUMAB
     Indication: RHEUMATOID ARTHRITIS
     Route: 058
     Dates: start: 20171001
  3. DEFLAZACORT [Concomitant]
     Active Substance: DEFLAZACORT
     Indication: RHEUMATOID ARTHRITIS

REACTIONS (3)
  - Thrombosis [Unknown]
  - Peripheral artery occlusion [Unknown]
  - Cardiac steatosis [Unknown]
